FAERS Safety Report 6362169-1 (Version None)
Quarter: 2009Q3

REPORT INFORMATION
  Report Type: 
  Country: None (occurrence: None)
  Receive Date: 20090918
  Receipt Date: 20090915
  Transmission Date: 20100115
  Serious: Yes (Other)
  Sender: FDA-Public Use
  Company Number: US-MERCK-0909USA02130

PATIENT
  Age: 7 Year
  Sex: Female

DRUGS (2)
  1. SINGULAIR [Suspect]
     Indication: ASTHMA
     Route: 048
     Dates: end: 20090901
  2. ADVAIR HFA [Concomitant]
     Route: 065

REACTIONS (3)
  - AGGRESSION [None]
  - SUICIDAL IDEATION [None]
  - THINKING ABNORMAL [None]
